FAERS Safety Report 13727597 (Version 5)
Quarter: 2018Q2

REPORT INFORMATION
  Report Type: Spontaneous
  Country: US (occurrence: US)
  Receive Date: 20170707
  Receipt Date: 20180410
  Transmission Date: 20180711
  Serious: Yes (Hospitalization)
  Sender: FDA-Public Use
  Company Number: US-BIOGEN-2017BI00425655

PATIENT
  Age: 53 Year
  Sex: Male

DRUGS (2)
  1. TYSABRI [Suspect]
     Active Substance: NATALIZUMAB
     Indication: MULTIPLE SCLEROSIS
     Dosage: INFUSED OVER 1 HOUR
     Route: 042
     Dates: start: 20130606
  2. TYSABRI [Suspect]
     Active Substance: NATALIZUMAB
     Dosage: RESUMED
     Route: 065
     Dates: start: 201711

REACTIONS (3)
  - Haematoma [Recovered/Resolved]
  - Cardiac arrest [Unknown]
  - Heart valve incompetence [Recovered/Resolved]

NARRATIVE: CASE EVENT DATE: 201706
